FAERS Safety Report 5263519-X (Version None)
Quarter: 2007Q1

REPORT INFORMATION
  Report Type: 
  Country: None (occurrence: None)
  Receive Date: 20061213
  Receipt Date: 20040219
  Transmission Date: 20070707
  Serious: Yes (Death)
  Sender: FDA-Public Use
  Company Number: 2004UW01107

PATIENT
  Age: 70 Year
  Sex: Male
  Weight: 67.1324 kg

DRUGS (6)
  1. IRESSA [Suspect]
     Indication: NON-SMALL CELL LUNG CANCER
     Dosage: 250 MG QD PO
     Route: 048
     Dates: start: 20030613, end: 20030909
  2. ACIPHEX [Concomitant]
  3. LISINOPRIL [Concomitant]
  4. TAXOTERE [Concomitant]
  5. CARBOPLATIN [Concomitant]
  6. PACLITAXEL [Concomitant]

REACTIONS (1)
  - INTERSTITIAL LUNG DISEASE [None]
